FAERS Safety Report 12140961 (Version 1)
Quarter: 2016Q1

REPORT INFORMATION
  Report Type: Spontaneous
  Country: FR (occurrence: FR)
  Receive Date: 20160303
  Receipt Date: 20160303
  Transmission Date: 20160526
  Serious: Yes (Hospitalization)
  Sender: FDA-Public Use
  Company Number: FR-TEVA-639863ISR

PATIENT
  Age: 48 Year
  Sex: Female

DRUGS (5)
  1. NATULAN 50 MG, GELULE NOT TEVA [Suspect]
     Active Substance: PROCARBAZINE HYDROCHLORIDE
     Dosage: FIRST COURSE (C1)
     Route: 048
     Dates: start: 201512
  2. DOLIPRANE [Suspect]
     Active Substance: ACETAMINOPHEN
     Dosage: 4 GRAM DAILY;
     Route: 048
     Dates: end: 20160205
  3. VINCRISTINE TEVA [Suspect]
     Active Substance: VINCRISTINE
     Dosage: FIRST COURSE (C1)
     Route: 041
     Dates: start: 201512
  4. BELUSTINE [Suspect]
     Active Substance: LOMUSTINE
     Dosage: FIRST COURSE
     Route: 041
     Dates: start: 201512
  5. DOLIPRANE [Suspect]
     Active Substance: ACETAMINOPHEN
     Dosage: 6 GRAM DAILY; OCCASIONAL INTAKE
     Route: 048

REACTIONS (1)
  - Hepatitis acute [Recovering/Resolving]

NARRATIVE: CASE EVENT DATE: 20160205
